FAERS Safety Report 9789766 (Version 1)
Quarter: 2013Q4

REPORT INFORMATION
  Report Type: Spontaneous
  Country: IT (occurrence: None)
  Receive Date: 20131227
  Receipt Date: 20131227
  Transmission Date: 20140711
  Serious: Yes (Hospitalization, Other)
  Sender: FDA-Public Use
  Company Number: AUR-APL-2013-10688

PATIENT
  Age: 76 Year
  Sex: Male

DRUGS (2)
  1. LEVOFLOXACIN [Suspect]
     Indication: PRODUCT USED FOR UNKNOWN INDICATION
  2. METFORMIN [Suspect]
     Indication: TYPE 2 DIABETES MELLITUS

REACTIONS (9)
  - Toxicity to various agents [None]
  - Lethargy [None]
  - Disorientation [None]
  - Anion gap increased [None]
  - Metabolic acidosis [None]
  - Hyperlactacidaemia [None]
  - Hypoglycaemia [None]
  - Haemodialysis [None]
  - Tubulointerstitial nephritis [None]
